FAERS Safety Report 17606718 (Version 2)
Quarter: 2020Q1

REPORT INFORMATION
  Report Type: Spontaneous
  Country: US (occurrence: US)
  Receive Date: 20200331
  Receipt Date: 20200331
  Transmission Date: 20200409
  Serious: Yes (Hospitalization)
  Sender: FDA-Public Use
  Company Number: US-ANAZAOHEALTH CORPORATION-2082152

PATIENT
  Age: 44 Year
  Sex: Female
  Weight: 110 kg

DRUGS (1)
  1. TESTOSTERONE 100 MG PELLET?TESTOSTERONE 50 MG PELLET?TESTOSTERONE 25 M [Suspect]
     Active Substance: TESTOSTERONE
     Indication: HORMONE REPLACEMENT THERAPY
     Route: 058
     Dates: start: 20191212, end: 20200215

REACTIONS (1)
  - Cerebrovascular accident [Recovering/Resolving]

NARRATIVE: CASE EVENT DATE: 20200226
